FAERS Safety Report 11167676 (Version 3)
Quarter: 2017Q1

REPORT INFORMATION
  Report Type: Report from Study
  Country: DE (occurrence: DE)
  Receive Date: 20150605
  Receipt Date: 20170317
  Transmission Date: 20170428
  Serious: Yes (Death, Hospitalization)
  Sender: FDA-Public Use
  Company Number: DE-ROCHE-1561706

PATIENT
  Age: 46 Year
  Sex: Male
  Weight: 71 kg

DRUGS (5)
  1. HUMAN INSULIN [Concomitant]
     Active Substance: INSULIN HUMAN
  2. DACLATASVIR DIHYDROCHLORIDE [Suspect]
     Active Substance: DACLATASVIR DIHYDROCHLORIDE
     Indication: CHRONIC HEPATITIS C
     Route: 048
     Dates: start: 20150220, end: 20150530
  3. RIBAVIRIN. [Suspect]
     Active Substance: RIBAVIRIN
     Route: 048
     Dates: end: 20150530
  4. RIBAVIRIN. [Suspect]
     Active Substance: RIBAVIRIN
     Indication: CHRONIC HEPATITIS C
     Route: 048
     Dates: start: 20150220
  5. SOFOSBUVIR [Suspect]
     Active Substance: SOFOSBUVIR
     Indication: CHRONIC HEPATITIS C
     Route: 048
     Dates: start: 20150220, end: 20150530

REACTIONS (10)
  - Irritability [Not Recovered/Not Resolved]
  - Shock haemorrhagic [Fatal]
  - Pruritus [Not Recovered/Not Resolved]
  - Nausea [Not Recovered/Not Resolved]
  - Dyspnoea [Recovered/Resolved]
  - Oesophageal haemorrhage [Recovered/Resolved]
  - Encephalopathy [Recovered/Resolved]
  - Upper gastrointestinal haemorrhage [Fatal]
  - Ascites [Recovered/Resolved]
  - Haemoglobin decreased [Not Recovered/Not Resolved]

NARRATIVE: CASE EVENT DATE: 20150220
